FAERS Safety Report 13306316 (Version 2)
Quarter: 2017Q1

REPORT INFORMATION
  Report Type: Spontaneous
  Country: US (occurrence: US)
  Receive Date: 20170308
  Receipt Date: 20170314
  Transmission Date: 20170428
  Serious: Yes (Other)
  Sender: FDA-Public Use
  Company Number: US-PFIZER INC-2017098534

PATIENT
  Age: 19 Year
  Sex: Female
  Weight: 47 kg

DRUGS (3)
  1. NUVIGIL [Concomitant]
     Active Substance: ARMODAFINIL
     Indication: NARCOLEPSY
     Dosage: UNK
     Dates: start: 201501
  2. DIFLUCAN [Suspect]
     Active Substance: FLUCONAZOLE
     Indication: FUNGAL INFECTION
     Dosage: 200 MG, AS NEEDED
     Dates: end: 201702
  3. WELLBUTRIN XL [Concomitant]
     Active Substance: BUPROPION HYDROCHLORIDE
     Dates: start: 201404, end: 201701

REACTIONS (8)
  - Lip swelling [Unknown]
  - Alopecia [Not Recovered/Not Resolved]
  - Oral mucosal blistering [Unknown]
  - Tongue discomfort [Unknown]
  - Mouth injury [Unknown]
  - Seizure [Not Recovered/Not Resolved]
  - Breath odour [Unknown]
  - Stomatitis [Unknown]

NARRATIVE: CASE EVENT DATE: 201508
